FAERS Safety Report 5528185-4 (Version None)
Quarter: 2007Q4

REPORT INFORMATION
  Report Type: 
  Country: None (occurrence: None)
  Receive Date: 20071121
  Receipt Date: 20071106
  Transmission Date: 20080405
  Serious: Yes (Death)
  Sender: FDA-Public Use
  Company Number: 163801ISR

PATIENT
  Age: 62 Year
  Sex: Female

DRUGS (1)
  1. DICLOFENAC SODIUM [Suspect]
     Indication: PROCEDURAL PAIN
     Dosage: 50 MG
     Dates: start: 20071026

REACTIONS (3)
  - ANGIOEDEMA [None]
  - NERVOUS SYSTEM DISORDER [None]
  - RESPIRATORY FAILURE [None]
